FAERS Safety Report 25796636 (Version 1)
Quarter: 2025Q3

REPORT INFORMATION
  Report Type: Spontaneous
  Country: US (occurrence: US)
  Receive Date: 20250912
  Receipt Date: 20250912
  Transmission Date: 20251021
  Serious: Yes (Hospitalization, Other)
  Sender: NOVO NORDISK
  Company Number: US-NOVOPROD-1514965

PATIENT
  Age: 74 Year
  Sex: Female
  Weight: 102.06 kg

DRUGS (2)
  1. OZEMPIC [Suspect]
     Active Substance: SEMAGLUTIDE
     Indication: Product used for unknown indication
     Dosage: 1 MG, QW
     Dates: start: 2022
  2. XELJANZ XR [Concomitant]
     Active Substance: TOFACITINIB CITRATE
     Indication: Psoriatic arthropathy
     Dosage: 11 MG, QD

REACTIONS (5)
  - Cholecystectomy [Unknown]
  - Abscess [Unknown]
  - Biliary catheter insertion [Unknown]
  - Bile duct stent insertion [Unknown]
  - Sepsis [Unknown]
